FAERS Safety Report 19144775 (Version 2)
Quarter: 2021Q2

REPORT INFORMATION
  Report Type: Spontaneous
  Country: NL (occurrence: NL)
  Receive Date: 20210416
  Receipt Date: 20210422
  Transmission Date: 20210717
  Serious: Yes (Hospitalization, Other)
  Sender: FDA-Public Use
  Company Number: NL-JNJFOC-20210412417

PATIENT
  Age: 6 Week
  Sex: Male

DRUGS (2)
  1. BUDESONIDE. [Suspect]
     Active Substance: BUDESONIDE
     Indication: CROHN^S DISEASE
     Route: 064
  2. REMICADE [Suspect]
     Active Substance: INFLIXIMAB
     Indication: CROHN^S DISEASE
     Route: 064

REACTIONS (5)
  - Vesicoureteric reflux [Unknown]
  - Foetal exposure during pregnancy [Recovered/Resolved]
  - Escherichia urinary tract infection [Recovered/Resolved]
  - Fungal infection [Recovered/Resolved]
  - Renal tubular dysfunction [Recovered/Resolved]
